FAERS Safety Report 14937427 (Version 1)
Quarter: 2018Q2

REPORT INFORMATION
  Report Type: Spontaneous
  Country: LV (occurrence: LV)
  Receive Date: 20180525
  Receipt Date: 20180525
  Transmission Date: 20180711
  Serious: Yes (Hospitalization)
  Sender: FDA-Public Use
  Company Number: LV-ORION CORPORATION ORION PHARMA-TREX2018-1573

PATIENT
  Age: 56 Year
  Sex: Male

DRUGS (5)
  1. ETORICOXIB [Concomitant]
     Active Substance: ETORICOXIB
     Route: 065
  2. PREDNISOLONE. [Concomitant]
     Active Substance: PREDNISOLONE
     Indication: PAIN
     Route: 048
  3. METHOTREXATE. [Suspect]
     Active Substance: METHOTREXATE
     Route: 048
  4. PREDNISOLONE. [Concomitant]
     Active Substance: PREDNISOLONE
     Indication: PAIN
     Route: 048
  5. ENBREL [Concomitant]
     Active Substance: ETANERCEPT
     Route: 058
     Dates: start: 201703

REACTIONS (5)
  - Rheumatoid nodule [Unknown]
  - Pulmonary tuberculosis [Unknown]
  - Fungal infection [Unknown]
  - Metastasis [Unknown]
  - Rheumatoid arthritis [Recovering/Resolving]
